FAERS Safety Report 6330176-0 (Version None)
Quarter: 2009Q3

REPORT INFORMATION
  Report Type: 
  Country: None (occurrence: None)
  Receive Date: 20090827
  Receipt Date: 20090817
  Transmission Date: 20100115
  Serious: Yes (Other)
  Sender: FDA-Public Use
  Company Number: US-JNJFOC-20090805411

PATIENT
  Sex: Female
  Weight: 89.36 kg

DRUGS (5)
  1. REMICADE [Suspect]
     Indication: RHEUMATOID ARTHRITIS
     Route: 042
  2. ESTROGEN [Concomitant]
  3. METHOTREXATE [Concomitant]
     Indication: RHEUMATOID ARTHRITIS
  4. VALTREX [Concomitant]
     Indication: HERPES ZOSTER
  5. SYNTHROID [Concomitant]

REACTIONS (1)
  - HERPES ZOSTER [None]
